FAERS Safety Report 15393298 (Version 1)
Quarter: 2018Q3

REPORT INFORMATION
  Report Type: Other
  Country: US (occurrence: US)
  Receive Date: 20180917
  Receipt Date: 20180917
  Transmission Date: 20181010
  Serious: No
  Sender: FDA-Public Use
  Company Number: US-LEADIANT BIOSCIENCES INC-2017STPI000679

PATIENT
  Sex: Male

DRUGS (5)
  1. LOMUSTINE. [Concomitant]
     Active Substance: LOMUSTINE
  2. NYSTATIN. [Concomitant]
     Active Substance: NYSTATIN
  3. MATULANE [Suspect]
     Active Substance: PROCARBAZINE HYDROCHLORIDE
     Indication: BRAIN NEOPLASM MALIGNANT
     Dosage: 150 MG DAILY
     Route: 048
     Dates: start: 20170621
  4. ONDANSETRON [Concomitant]
     Active Substance: ONDANSETRON
  5. CARAC                              /00098801/ [Concomitant]

REACTIONS (2)
  - Nasopharyngitis [Not Recovered/Not Resolved]
  - Rash [Not Recovered/Not Resolved]
